FAERS Safety Report 11108737 (Version 1)
Quarter: 2015Q2

REPORT INFORMATION
  Report Type: Spontaneous
  Country: US (occurrence: None)
  Receive Date: 20150511
  Receipt Date: 20150511
  Transmission Date: 20150821
  Serious: Yes (Other)
  Sender: FDA-Public Use
  Company Number: None

PATIENT
  Age: 60 Year
  Sex: Male
  Weight: 108.86 kg

DRUGS (9)
  1. CITRATE [Concomitant]
     Active Substance: CITRIC ACID MONOHYDRATE
  2. IBUPROFEN. [Concomitant]
     Active Substance: IBUPROFEN
  3. RISPERDONE [Suspect]
     Active Substance: RISPERIDONE
     Indication: DEPRESSION
     Route: 048
     Dates: start: 20130814, end: 20140115
  4. RISPERDONE [Suspect]
     Active Substance: RISPERIDONE
     Indication: ANXIETY
     Route: 048
     Dates: start: 20130814, end: 20140115
  5. AMLODIPINE BESYLATE. [Concomitant]
     Active Substance: AMLODIPINE BESYLATE
  6. RISPERDONE [Suspect]
     Active Substance: RISPERIDONE
     Indication: COGNITIVE DISORDER
     Route: 048
     Dates: start: 20130814, end: 20140115
  7. SILDENAFIL. [Concomitant]
     Active Substance: SILDENAFIL
  8. BUPROPION [Concomitant]
     Active Substance: BUPROPION
  9. METOPROLOL TARTRATE. [Concomitant]
     Active Substance: METOPROLOL TARTRATE

REACTIONS (15)
  - Abdominal discomfort [None]
  - Anxiety [None]
  - Breast enlargement [None]
  - Headache [None]
  - Somnolence [None]
  - Pain in extremity [None]
  - Musculoskeletal stiffness [None]
  - Dry mouth [None]
  - Thirst [None]
  - Dyspnoea [None]
  - Pyrexia [None]
  - Asthenia [None]
  - Depression [None]
  - Fatigue [None]
  - Dizziness [None]

NARRATIVE: CASE EVENT DATE: 20040115
